FAERS Safety Report 22007200 (Version 1)
Quarter: 2023Q1

REPORT INFORMATION
  Report Type: Spontaneous
  Country: US (occurrence: US)
  Receive Date: 20230217
  Receipt Date: 20230217
  Transmission Date: 20230417
  Serious: No
  Sender: FDA-Public Use
  Company Number: US-drreddys-SPO/USA/23/0160294

PATIENT
  Age: 79 Year
  Sex: Female

DRUGS (19)
  1. LENALIDOMIDE [Suspect]
     Active Substance: LENALIDOMIDE
     Indication: Hypothyroidism
     Dosage: FOR 21 DAYS FOLLOWED BY 7 DAYS OFF
     Route: 048
     Dates: start: 20221208
  2. CIPROFLOXACIN [Concomitant]
     Active Substance: CIPROFLOXACIN
     Indication: Product used for unknown indication
  3. LEVOTHYROXINE SODIUM [Concomitant]
     Active Substance: LEVOTHYROXINE SODIUM
     Indication: Product used for unknown indication
  4. AMOXICILLIN CAP 500MG [Concomitant]
     Indication: Product used for unknown indication
  5. CYCLOBENZAPR CP2 15MG [Concomitant]
     Indication: Product used for unknown indication
  6. DEXAMETHASONE [Concomitant]
     Active Substance: DEXAMETHASONE
     Indication: Product used for unknown indication
  7. FUROSEMIDE TAB 40MG [Concomitant]
     Indication: Product used for unknown indication
  8. LEVOTHYROXIN TAB 100MCG [Concomitant]
     Indication: Product used for unknown indication
  9. LOSARTAN POT TAB 50MG [Concomitant]
     Indication: Product used for unknown indication
  10. METHYLPHENID TAB 10MG [Concomitant]
     Indication: Product used for unknown indication
  11. MYRBETRIQ TB2 50MG [Concomitant]
     Indication: Product used for unknown indication
  12. RESTASIS EMU 0.05 percent [Concomitant]
     Indication: Product used for unknown indication
  13. ROSUVASTATIN [Concomitant]
     Active Substance: ROSUVASTATIN
     Indication: Product used for unknown indication
  14. CHLORHE IDIN SOL 0.12 percent [Concomitant]
     Indication: Product used for unknown indication
  15. ACETAMINOPHEN EXTRA STREN [Concomitant]
     Indication: Product used for unknown indication
  16. ARTHRITIS PAIN RELIEF [Concomitant]
     Indication: Product used for unknown indication
  17. GABAPENTIN CAP 100MG [Concomitant]
     Indication: Product used for unknown indication
  18. DRONABINOL [Concomitant]
     Active Substance: DRONABINOL
     Indication: Product used for unknown indication
  19. SULFAMETHOXAZOLE-TRIMETHO [Concomitant]
     Indication: Product used for unknown indication

REACTIONS (2)
  - Product dose omission issue [Unknown]
  - Product use in unapproved indication [Unknown]
